FAERS Safety Report 8825374 (Version 4)
Quarter: 2013Q3

REPORT INFORMATION
  Report Type: Report from Study
  Country: JP (occurrence: JP)
  Receive Date: 20121004
  Receipt Date: 20130802
  Transmission Date: 20140515
  Serious: Yes (Other)
  Sender: FDA-Public Use
  Company Number: JP-VERTEX PHARMACEUTICAL INC.-AE-2012-007777

PATIENT
  Age: 52 Year
  Sex: Female

DRUGS (16)
  1. VX-950 (TELAPREVIR) [Suspect]
     Indication: CHRONIC HEPATITIS C
     Dosage: 2250 MG, QD
     Route: 048
     Dates: start: 20120403, end: 20120528
  2. VX-950 (TELAPREVIR) [Suspect]
     Dosage: 1500 MG, QD
     Route: 048
     Dates: start: 20120529, end: 20120625
  3. PEGINTRON [Suspect]
     Indication: CHRONIC HEPATITIS C
     Dosage: 1.5 ?G/KG, QW
     Route: 058
     Dates: start: 20120403, end: 20120410
  4. PEGINTRON [Suspect]
     Dosage: 1 ?G/KG, QW
     Route: 058
     Dates: start: 20120417, end: 20120417
  5. PEGINTRON [Suspect]
     Dosage: 0.66 ?G/KG, QW
     Route: 058
     Dates: start: 20120424, end: 20120619
  6. PEGINTRON [Suspect]
     Dosage: 0.83 ?G/KG, QW
     Route: 058
     Dates: start: 20120626, end: 20120911
  7. REBETOL [Suspect]
     Indication: CHRONIC HEPATITIS C
     Dosage: 600 MG, QD
     Route: 048
     Dates: start: 20120403, end: 20120702
  8. REBETOL [Suspect]
     Dosage: 400 MG, QD
     Route: 048
     Dates: start: 20120703, end: 20120730
  9. REBETOL [Suspect]
     Dosage: 600 MG, QD
     Route: 048
     Dates: start: 20120731, end: 20120917
  10. DINAGEST [Concomitant]
     Dosage: 2 MG, QD
     Route: 048
     Dates: start: 20111112, end: 20120502
  11. ZYLORIC [Concomitant]
     Dosage: 200 MG, QD
     Route: 048
  12. ZYLORIC [Concomitant]
     Dosage: UNK
  13. PROMAC [Concomitant]
     Dosage: 1 G, QD
     Route: 048
     Dates: start: 20120620, end: 20120626
  14. GASMOTIN [Concomitant]
     Dosage: 15 MG, QD
     Route: 048
     Dates: start: 20120620, end: 20120626
  15. PARIET [Concomitant]
     Dosage: 10 MG, QD
     Route: 048
     Dates: start: 20120626
  16. LOXONIN [Concomitant]
     Dosage: 60 MG, QD/PRN
     Route: 048
     Dates: start: 20120731, end: 20120917

REACTIONS (4)
  - White blood cell count decreased [Recovered/Resolved]
  - Neutrophil count decreased [Recovered/Resolved]
  - Neutrophil count decreased [Recovered/Resolved]
  - Anaemia [Recovered/Resolved]
